FAERS Safety Report 7928411-8 (Version None)
Quarter: 2011Q4

REPORT INFORMATION
  Report Type: 
  Country: None (occurrence: None)
  Receive Date: 20111118
  Receipt Date: 20111110
  Transmission Date: 20120403
  Serious: Yes (Other)
  Sender: FDA-Public Use
  Company Number: GB-ROCHE-1013612

PATIENT
  Sex: Female

DRUGS (7)
  1. LUCENTIS [Suspect]
     Indication: AGE-RELATED MACULAR DEGENERATION
     Route: 050
     Dates: start: 20091208
  2. CETIRIZINE HCL [Concomitant]
  3. SYMBICORT [Concomitant]
  4. LUCENTIS [Suspect]
     Route: 050
     Dates: start: 20100213
  5. RAMIPRIL [Concomitant]
  6. VITEYES PRODUCT NOS [Concomitant]
  7. ALBUTEROL SULFATE AUTOHALER [Concomitant]

REACTIONS (2)
  - DACRYOSTENOSIS ACQUIRED [None]
  - BLEPHARITIS [None]
